FAERS Safety Report 11308841 (Version 2)
Quarter: 2015Q3

REPORT INFORMATION
  Report Type: Spontaneous
  Country: JP (occurrence: JP)
  Receive Date: 20150724
  Receipt Date: 20150820
  Transmission Date: 20151125
  Serious: No
  Sender: FDA-Public Use
  Company Number: JP-ELI_LILLY_AND_COMPANY-JP201506007872

PATIENT
  Age: 38 Year
  Sex: Female
  Weight: 43 kg

DRUGS (10)
  1. ZYPREXA [Suspect]
     Active Substance: OLANZAPINE
     Dosage: 1.0 G, QD
     Route: 048
     Dates: start: 20150609, end: 20150615
  2. AMITIZA [Concomitant]
     Active Substance: LUBIPROSTONE
     Dosage: UNK
     Route: 048
  3. SINGULAIR [Concomitant]
     Active Substance: MONTELUKAST SODIUM
     Dosage: UNK
     Route: 048
  4. ZYPREXA [Suspect]
     Active Substance: OLANZAPINE
     Dosage: 0.5 G, QD
     Route: 048
     Dates: start: 20150620
  5. UNIPHYL [Concomitant]
     Active Substance: THEOPHYLLINE ANHYDROUS
     Dosage: UNK
     Route: 048
  6. LONASEN [Concomitant]
     Active Substance: BLONANSERIN
     Dosage: UNK
     Route: 048
  7. ZYPREXA [Suspect]
     Active Substance: OLANZAPINE
     Indication: SCHIZOPHRENIA
     Dosage: 1.25 G, QD
     Route: 048
     Dates: start: 20150601, end: 20150608
  8. ZYPREXA [Suspect]
     Active Substance: OLANZAPINE
     Dosage: 0.75 G, QD
     Route: 048
     Dates: start: 20150616, end: 20150619
  9. LUTIANON R [Concomitant]
     Indication: ANGINA PECTORIS
     Dosage: 200 UNK, UNK
     Route: 048
  10. REFLEX                             /00021218/ [Concomitant]
     Dosage: UNK
     Route: 048

REACTIONS (1)
  - Epilepsy [Recovered/Resolved]

NARRATIVE: CASE EVENT DATE: 20150620
